FAERS Safety Report 8516032-8 (Version None)
Quarter: 2012Q3

REPORT INFORMATION
  Report Type: 
  Country: None (occurrence: None)
  Receive Date: 20120717
  Receipt Date: 20120413
  Transmission Date: 20120928
  Serious: No
  Sender: FDA-Public Use
  Company Number: US-NOVEN-12US004473

PATIENT
  Sex: Female

DRUGS (3)
  1. HYDROCODONE [Concomitant]
     Indication: BREAKTHROUGH PAIN
     Dosage: PRN
     Route: 048
  2. FENTANYL [Suspect]
     Indication: PAIN
     Dosage: 25 UG/HR Q 60 HRS
     Route: 062
     Dates: start: 20090101
  3. CITALOPRAM HYDROBROMIDE [Concomitant]
     Indication: ANXIETY
     Dosage: 10 MG, MORNING
     Route: 048

REACTIONS (3)
  - INADEQUATE ANALGESIA [None]
  - TREMOR [None]
  - PRODUCT QUALITY ISSUE [None]
